FAERS Safety Report 4663013-0 (Version None)
Quarter: 2005Q2

REPORT INFORMATION
  Report Type: 
  Country: None (occurrence: None)
  Receive Date: 20050511
  Receipt Date: 20040817
  Transmission Date: 20051028
  Serious: Yes (Hospitalization)
  Sender: FDA-Public Use
  Company Number: ZONI002010

PATIENT
  Age: 40 Year
  Sex: Male

DRUGS (3)
  1. ZONEGRAN [Suspect]
     Indication: BIPOLAR DISORDER
     Dosage: 100 MG, ORAL
     Route: 048
     Dates: start: 20040701, end: 20040813
  2. LITHIUM CARBONATE [Concomitant]
  3. CIALIS [Concomitant]

REACTIONS (1)
  - PULMONARY EMBOLISM [None]
